FAERS Safety Report 4390958-1 (Version None)
Quarter: 2004Q3

REPORT INFORMATION
  Report Type: 
  Country: None (occurrence: None)
  Receive Date: 20040706
  Receipt Date: 20040628
  Transmission Date: 20050211
  Serious: Yes (Death, Hospitalization)
  Sender: FDA-Public Use
  Company Number: 04-06-0918

PATIENT
  Age: 48 Year
  Sex: Male

DRUGS (1)
  1. PROBENECID W/ COLCHICINE [Suspect]
     Indication: GOUT
     Dosage: 18MG ORAL
     Route: 048

REACTIONS (24)
  - ARTHRALGIA [None]
  - AZOTAEMIA [None]
  - BODY TEMPERATURE INCREASED [None]
  - BONE MARROW DEPRESSION [None]
  - CARDIAC FAILURE HIGH OUTPUT [None]
  - CYANOSIS [None]
  - DIARRHOEA [None]
  - DISSEMINATED INTRAVASCULAR COAGULATION [None]
  - ENCEPHALOPATHY [None]
  - FLUID OVERLOAD [None]
  - HAEMODIALYSIS [None]
  - HYPOTENSION [None]
  - LACTIC ACIDOSIS [None]
  - MYOPATHY [None]
  - NAUSEA [None]
  - OLIGURIA [None]
  - ORGAN FAILURE [None]
  - OVERDOSE [None]
  - RASH [None]
  - RESPIRATORY DISTRESS [None]
  - RHABDOMYOLYSIS [None]
  - SHOCK [None]
  - TOXIC EPIDERMAL NECROLYSIS [None]
  - VOMITING [None]
